FAERS Safety Report 17124926 (Version 1)
Quarter: 2019Q4

REPORT INFORMATION
  Report Type: Spontaneous
  Country: US (occurrence: US)
  Receive Date: 20191206
  Receipt Date: 20191206
  Transmission Date: 20200122
  Serious: No
  Sender: FDA-Public Use
  Company Number: US-TEVA-2019-US-1147754

PATIENT
  Age: 72 Year
  Sex: Female

DRUGS (2)
  1. CLONAZEPAM TABLET TEVA [Suspect]
     Active Substance: CLONAZEPAM
     Indication: ANXIETY
     Dosage: 1 MILLIGRAM DAILY; 12 TO 13 YEARS TOTAL.
     Route: 065
  2. CLONAZEPAM TABLET TEVA [Suspect]
     Active Substance: CLONAZEPAM
     Dosage: 6 MILLIGRAM DAILY; 6 MG A DAY TOTAL,
     Route: 065

REACTIONS (1)
  - Drug ineffective [Unknown]
